FAERS Safety Report 10706591 (Version 2)
Quarter: 2015Q1

REPORT INFORMATION
  Report Type: Report from Study
  Country: CA (occurrence: CA)
  Receive Date: 20150113
  Receipt Date: 20150204
  Transmission Date: 20150721
  Serious: Yes (Other)
  Sender: FDA-Public Use
  Company Number: PHHY2015CA000906

PATIENT
  Age: 0 Day
  Sex: Male

DRUGS (1)
  1. GILENYA [Suspect]
     Active Substance: FINGOLIMOD HYDROCHLORIDE
     Indication: PRODUCT USED FOR UNKNOWN INDICATION
     Dosage: VIA MOTHER
     Route: 064
     Dates: start: 20120111, end: 201208

REACTIONS (3)
  - Foetal exposure during pregnancy [Unknown]
  - Maternal condition affecting foetus [Unknown]
  - Premature baby [Unknown]

NARRATIVE: CASE EVENT DATE: 20140315
